FAERS Safety Report 20477020 (Version 1)
Quarter: 2022Q1

REPORT INFORMATION
  Report Type: Spontaneous
  Country: US (occurrence: US)
  Receive Date: 20220215
  Receipt Date: 20220215
  Transmission Date: 20220423
  Serious: Yes (Death, Hospitalization, Other)
  Sender: FDA-Public Use
  Company Number: US-PFIZER INC-202200255793

PATIENT
  Age: 91 Year
  Sex: Female

DRUGS (6)
  1. GABAPENTIN [Suspect]
     Active Substance: GABAPENTIN
     Dosage: (INGESTION)
     Route: 048
  2. LEVETIRACETAM [Suspect]
     Active Substance: LEVETIRACETAM
     Dosage: (INGESTION)
     Route: 048
  3. PHENYTOIN [Suspect]
     Active Substance: PHENYTOIN
     Dosage: (INGESTION)
     Route: 048
  4. OXYCODONE [Suspect]
     Active Substance: OXYCODONE
     Dosage: (INGESTION)
     Route: 048
  5. DRONABINOL [Suspect]
     Active Substance: DRONABINOL
     Dosage: (INGESTION)
     Route: 048
  6. LACOSAMIDE [Suspect]
     Active Substance: LACOSAMIDE
     Dosage: (INGESTION)
     Route: 048

REACTIONS (4)
  - Medication error [Fatal]
  - Death [Fatal]
  - Cardiac arrest [Fatal]
  - Respiratory arrest [Fatal]

NARRATIVE: CASE EVENT DATE: 20200101
